FAERS Safety Report 17662013 (Version 1)
Quarter: 2020Q2

REPORT INFORMATION
  Report Type: Spontaneous
  Country: GB (occurrence: GB)
  Receive Date: 20200413
  Receipt Date: 20200413
  Transmission Date: 20200713
  Serious: Yes (Hospitalization)
  Sender: FDA-Public Use
  Company Number: GB-TEVA-2020-GB-1222518

PATIENT
  Age: 85 Year
  Sex: Female

DRUGS (8)
  1. BECLOMETASONE [Concomitant]
     Active Substance: BECLOMETHASONE DIPROPIONATE
     Dosage: PUFF. 200 MICROGRAM
     Route: 050
  2. LISINOPRIL. [Suspect]
     Active Substance: LISINOPRIL
     Dosage: IN MORNING. 10 MG
     Route: 048
     Dates: end: 20190924
  3. SALBUTAMOL [Concomitant]
     Active Substance: ALBUTEROL
     Dosage: 100MICROGRAMS PER DOSE, ONE OR TWO PUFFS AS NECESSARY
     Route: 050
  4. LANSOPRAZOLE. [Suspect]
     Active Substance: LANSOPRAZOLE
     Dosage: IN MORNING. 15 MG
     Route: 048
     Dates: end: 20190924
  5. INDAPAMIDE. [Suspect]
     Active Substance: INDAPAMIDE
     Dosage: IN MORNING. 2.5 MG
     Route: 048
     Dates: end: 20190924
  6. ATORVASTATIN [Concomitant]
     Active Substance: ATORVASTATIN
     Dosage: 20 MG
     Route: 048
  7. FORMOTEROL [Concomitant]
     Active Substance: FORMOTEROL
     Dosage: PUFF. 12 MICROGRAM
     Route: 050
  8. ADCAL (CALCIUM CARBONATE) [Suspect]
     Active Substance: CALCIUM CARBONATE
     Dosage: 400UNIT/1.5G. 2 DOSAGE FORMS
     Route: 048
     Dates: end: 20190924

REACTIONS (5)
  - Hypercalcaemia [Recovering/Resolving]
  - Blood electrolytes abnormal [Unknown]
  - Orthostatic hypotension [Unknown]
  - Hypomagnesaemia [Recovered/Resolved]
  - Delirium [Unknown]

NARRATIVE: CASE EVENT DATE: 20190923
